FAERS Safety Report 20198971 (Version 1)
Quarter: 2021Q4

REPORT INFORMATION
  Report Type: Spontaneous
  Country: US (occurrence: US)
  Receive Date: 20211217
  Receipt Date: 20211217
  Transmission Date: 20220303
  Serious: No
  Sender: FDA-Public Use
  Company Number: US-ELI_LILLY_AND_COMPANY-US202112006677

PATIENT
  Age: 33 Year
  Sex: Female

DRUGS (2)
  1. HUMULIN N [Suspect]
     Active Substance: INSULIN HUMAN
     Indication: Product used for unknown indication
     Dosage: 30 U, EACH MORNING
     Route: 058
     Dates: start: 2018
  2. HUMULIN N [Suspect]
     Active Substance: INSULIN HUMAN
     Dosage: 18-28 U, PRN (IN THE NIGHT)
     Route: 058
     Dates: start: 2018

REACTIONS (3)
  - Lethargy [Not Recovered/Not Resolved]
  - Asthenia [Not Recovered/Not Resolved]
  - Dizziness [Not Recovered/Not Resolved]

NARRATIVE: CASE EVENT DATE: 20211101
